FAERS Safety Report 13002321 (Version 1)
Quarter: 2016Q4

REPORT INFORMATION
  Report Type: Spontaneous
  Country: US (occurrence: US)
  Receive Date: 20161206
  Receipt Date: 20161206
  Transmission Date: 20170207
  Serious: No
  Sender: FDA-Public Use
  Company Number: US-BAUSCH-BL-2015-029027

PATIENT
  Age: 34 Year
  Sex: Female
  Weight: 65.38 kg

DRUGS (4)
  1. CERAVE FACIAL MOISTURIZING LOTION PM [Suspect]
     Active Substance: COSMETICS
     Indication: THERAPEUTIC SKIN CARE TOPICAL
     Route: 061
     Dates: start: 20151128
  2. CERAVE FOAMING FACIAL CLEANSER [Suspect]
     Active Substance: OCTINOXATE\TITANIUM DIOXIDE\ZINC OXIDE
     Indication: THERAPEUTIC SKIN CARE TOPICAL
     Route: 061
     Dates: start: 2015
  3. CERAVE SA RENEWING LOTION [Suspect]
     Active Substance: HYALURONIC ACID
     Indication: THERAPEUTIC SKIN CARE TOPICAL
     Route: 061
     Dates: start: 2015, end: 20151128
  4. ONEXTON [Suspect]
     Active Substance: BENZOYL PEROXIDE\CLINDAMYCIN PHOSPHATE
     Indication: PRODUCT USED FOR UNKNOWN INDICATION
     Route: 065
     Dates: start: 20151128

REACTIONS (2)
  - Acne [Unknown]
  - Rash [Unknown]

NARRATIVE: CASE EVENT DATE: 20151130
